FAERS Safety Report 9912204 (Version 1)
Quarter: 2014Q1

REPORT INFORMATION
  Report Type: Spontaneous
  Country: CH (occurrence: CH)
  Receive Date: 20140220
  Receipt Date: 20140220
  Transmission Date: 20141002
  Serious: Yes (Hospitalization)
  Sender: FDA-Public Use
  Company Number: CH-BRISTOL-MYERS SQUIBB COMPANY-20181418

PATIENT
  Age: 62 Year
  Sex: Male

DRUGS (6)
  1. ARIPIPRAZOLE [Suspect]
     Dosage: 15 MG- 14-JAN-2014 TO 18-JAN-2014-5 DAYS?10 MG- 18-JAN-2014 TO 21-JAN-2014-4 DAYS.
     Route: 048
     Dates: start: 20140114, end: 20140121
  2. BUPROPION [Suspect]
     Route: 048
     Dates: end: 20140121
  3. SERTRALINE [Suspect]
     Route: 048
     Dates: end: 20140121
  4. AKINETON [Suspect]
     Dosage: AKINETON 4X2 MG/DAY 13-JAN-2014.
     Route: 048
     Dates: start: 20140113, end: 20140121
  5. LITHIOFOR [Suspect]
     Dosage: LITHIUM (LITHIOFOR) 660 MG/DAY (MATIN) + 330 MG/DAY (SOIR).
     Route: 048
     Dates: start: 20140114, end: 20140121
  6. LOSARTAN [Concomitant]
     Route: 048

REACTIONS (5)
  - Serotonin syndrome [Recovering/Resolving]
  - Ataxia [Recovering/Resolving]
  - Tremor [Recovering/Resolving]
  - Confusional state [Recovering/Resolving]
  - Dry mouth [Recovering/Resolving]
